FAERS Safety Report 24218834 (Version 2)
Quarter: 2025Q4

REPORT INFORMATION
  Report Type: Spontaneous
  Country: US (occurrence: US)
  Receive Date: 20240816
  Receipt Date: 20251027
  Transmission Date: 20260117
  Serious: No
  Sender: SANOFI AVENTIS
  Company Number: US-SA-SAC20240813000149

PATIENT
  Sex: Male

DRUGS (18)
  1. DUPIXENT [Suspect]
     Active Substance: DUPILUMAB
     Indication: Eosinophilic oesophagitis
     Dosage: 300 MG, QW
     Route: 058
     Dates: start: 202206
  2. DUPIXENT [Suspect]
     Active Substance: DUPILUMAB
     Indication: Dysphagia
  3. RITALIN LA [Concomitant]
     Active Substance: METHYLPHENIDATE HYDROCHLORIDE
  4. BUPROPION HYDROCHLORIDE [Concomitant]
     Active Substance: BUPROPION HYDROCHLORIDE
  5. GUANFACINE HYDROCHLORIDE [Concomitant]
     Active Substance: GUANFACINE HYDROCHLORIDE
  6. ALBUTEROL SULFATE [Concomitant]
     Active Substance: ALBUTEROL SULFATE
  7. IPRATROPIUM [Concomitant]
     Active Substance: IPRATROPIUM
  8. KETOCONAZOLE [Concomitant]
     Active Substance: KETOCONAZOLE
  9. LISINOPRIL [Concomitant]
     Active Substance: LISINOPRIL
  10. MONTELUKAST [Concomitant]
     Active Substance: MONTELUKAST
  11. NASACORT ALLERGY 24HR [Concomitant]
     Active Substance: TRIAMCINOLONE ACETONIDE
  12. OMEPRAZOLE [Concomitant]
     Active Substance: OMEPRAZOLE
  13. PREDNISONE [Concomitant]
     Active Substance: PREDNISONE
  14. KETOCONAZOLE [Concomitant]
     Active Substance: KETOCONAZOLE
  15. AUVI-Q [Concomitant]
     Active Substance: EPINEPHRINE
  16. GABAPENTIN [Concomitant]
     Active Substance: GABAPENTIN
  17. GLYCOPYRROLATE [Concomitant]
     Active Substance: GLYCOPYRROLATE
  18. BUDESONIDE\FORMOTEROL [Concomitant]
     Active Substance: BUDESONIDE\FORMOTEROL

REACTIONS (3)
  - Fungal infection [Not Recovered/Not Resolved]
  - Injection site bruising [Unknown]
  - Product use in unapproved indication [Unknown]
